FAERS Safety Report 9210031 (Version 1)
Quarter: 2012Q4

REPORT INFORMATION
  Report Type: 
  Country: FR (occurrence: FR)
  Receive Date: 20120903
  Receipt Date: 20120903
  Transmission Date: 20130627
  Serious: Yes (Hospitalization, Other)
  Sender: FDA-Public Use
  Company Number: PHHY2012FR075612

PATIENT
  Sex: Female

DRUGS (18)
  1. COTAREG [Suspect]
     Indication: HYPERTENSION
     Dosage: 2 DF, daily
     Dates: end: 20111130
  2. COTAREG [Suspect]
     Dosage: 1 DF, QD
  3. TARKA [Suspect]
     Indication: HYPERTENSION
     Dates: end: 20111130
  4. CATAPRESSAN [Concomitant]
     Dosage: 2 DF, daily
  5. MEDIATENSYL [Concomitant]
     Dosage: 3 DF, daily
  6. TAHOR [Concomitant]
     Dosage: 3 DF, daily
  7. ZYLORIC [Concomitant]
     Dosage: 1 DF, daily
  8. MOPRAL [Concomitant]
     Dosage: 1 DF, daily
  9. DITROPAN [Concomitant]
     Dosage: 3 DF, daily
  10. KARDEGIC [Concomitant]
     Dosage: 1 DF, daily
  11. SERETIDE DISKUS [Concomitant]
     Dosage: 2 DF, daily
  12. SINGULAIR [Concomitant]
     Dosage: 1 DF, daily
  13. VENTOLINE [Concomitant]
  14. PARACETAMOL [Concomitant]
  15. NEURONTIN [Concomitant]
     Dosage: 3 DF, daily
  16. IMODIUM [Concomitant]
     Dosage: UNK UKN, PRN
  17. NOVORAPID [Concomitant]
     Dosage: 22 U, BID (on morning and evening)
  18. LANTUS [Concomitant]
     Dosage: 44 U, QD (on evening)

REACTIONS (6)
  - Confusional state [Unknown]
  - Disorientation [Unknown]
  - Gait disturbance [Unknown]
  - Renal failure acute [Recovered/Resolved]
  - Blood pressure fluctuation [Unknown]
  - Blood glucose increased [Unknown]
